FAERS Safety Report 9415204 (Version 1)
Quarter: 2013Q3

REPORT INFORMATION
  Report Type: Spontaneous
  Country: US (occurrence: US)
  Receive Date: 20130723
  Receipt Date: 20130723
  Transmission Date: 20140515
  Serious: Yes (Hospitalization)
  Sender: FDA-Public Use
  Company Number: US-B.I. PHARMACEUTICALS,INC./RIDGEFIELD-2013-BI-13025BP

PATIENT
  Age: 65 Year
  Sex: Male
  Weight: 78.47 kg

DRUGS (6)
  1. PRADAXA [Suspect]
     Indication: ANTICOAGULANT THERAPY
     Dosage: 300 MG
     Dates: start: 20110322, end: 20110827
  2. OMEPRAZOLE [Concomitant]
  3. LOVAZA [Concomitant]
  4. METOPROLOL [Concomitant]
  5. SIMVASTATIN [Concomitant]
  6. CELEBREX [Concomitant]

REACTIONS (2)
  - Cerebral haematoma [Unknown]
  - Cerebral haemorrhage [Unknown]
